FAERS Safety Report 8058416-0 (Version None)
Quarter: 2012Q1

REPORT INFORMATION
  Report Type: 
  Country: None (occurrence: None)
  Receive Date: 20120119
  Receipt Date: 20120119
  Transmission Date: 20120608
  Serious: Yes (Life-Threatening, Disabling, Other)
  Sender: FDA-Public Use
  Company Number: None

PATIENT
  Sex: Female
  Weight: 86.1834 kg

DRUGS (2)
  1. LARIAM [Suspect]
     Indication: MALARIA PROPHYLAXIS
     Dosage: 1X PER WEEK ORAL
     Route: 048
     Dates: start: 19980227
  2. LARIAM [Suspect]
     Indication: MALARIA PROPHYLAXIS
     Dosage: 1X PER WEEK ORAL
     Route: 048
     Dates: start: 19980209

REACTIONS (16)
  - FEAR [None]
  - EUPHORIC MOOD [None]
  - PALPITATIONS [None]
  - NIGHTMARE [None]
  - ANXIETY [None]
  - PAIN IN EXTREMITY [None]
  - VERTIGO [None]
  - FEELING ABNORMAL [None]
  - CHEST PAIN [None]
  - DYSPNOEA [None]
  - SUICIDAL IDEATION [None]
  - PANIC REACTION [None]
  - HEADACHE [None]
  - MUSCULAR WEAKNESS [None]
  - INSOMNIA [None]
  - DEPRESSION [None]
